FAERS Safety Report 23664449 (Version 1)
Quarter: 2024Q1

REPORT INFORMATION
  Report Type: Spontaneous
  Country: CZ (occurrence: CZ)
  Receive Date: 20240322
  Receipt Date: 20240322
  Transmission Date: 20240410
  Serious: Yes (Other)
  Sender: FDA-Public Use
  Company Number: CZ-BAYER-2024A043446

PATIENT
  Age: 51 Year
  Sex: Male
  Weight: 89 kg

DRUGS (2)
  1. FINERENONE [Suspect]
     Active Substance: FINERENONE
     Dosage: 10 MG, QD
     Dates: start: 20231122
  2. FINERENONE [Suspect]
     Active Substance: FINERENONE
     Dosage: 10 MG, QD
     Dates: start: 20240103

REACTIONS (3)
  - Hyperkalaemia [None]
  - Blood pressure diastolic increased [None]
  - Blood potassium increased [Not Recovered/Not Resolved]

NARRATIVE: CASE EVENT DATE: 20231213
